FAERS Safety Report 20227056 (Version 1)
Quarter: 2021Q4

REPORT INFORMATION
  Report Type: Spontaneous
  Country: None (occurrence: FR)
  Receive Date: 20211224
  Receipt Date: 20211224
  Transmission Date: 20220303
  Serious: Yes (Other)
  Sender: FDA-Public Use
  Company Number: FR-B.Braun Medical Inc.-2123371

PATIENT
  Age: 26 Year
  Sex: Female

DRUGS (7)
  1. ACETAMINOPHEN [Suspect]
     Active Substance: ACETAMINOPHEN
  2. IBUPROFEN [Suspect]
     Active Substance: IBUPROFEN
  3. TIAPROFENIC ACID [Suspect]
     Active Substance: TIAPROFENIC ACID
  4. ASPIRIN [Suspect]
     Active Substance: ASPIRIN
  5. NIFLUMIC ACID [Suspect]
     Active Substance: NIFLUMIC ACID
  6. NASACORT [Concomitant]
     Active Substance: TRIAMCINOLONE ACETONIDE
  7. ALBUTEROL [Concomitant]
     Active Substance: ALBUTEROL

REACTIONS (1)
  - Aspirin-exacerbated respiratory disease [Recovered/Resolved]
